FAERS Safety Report 6157124-0 (Version None)
Quarter: 2009Q2

REPORT INFORMATION
  Report Type: 
  Country: None (occurrence: None)
  Receive Date: 20090416
  Receipt Date: 20090407
  Transmission Date: 20091009
  Serious: Yes (Death, Other)
  Sender: FDA-Public Use
  Company Number: CA-JNJFOC-20090302981

PATIENT
  Sex: Male

DRUGS (2)
  1. REMICADE [Suspect]
     Indication: MYCOSIS FUNGOIDES
     Dosage: RECEIVED 2 DOSES OF INFLIXIMAB
     Route: 042
  2. CHEMOTHERAPY [Concomitant]
     Indication: MYCOSIS FUNGOIDES

REACTIONS (2)
  - PROGRESSIVE MULTIFOCAL LEUKOENCEPHALOPATHY [None]
  - RASH [None]
